FAERS Safety Report 8756586 (Version 2)
Quarter: 2013Q4

REPORT INFORMATION
  Report Type: Spontaneous
  Country: US (occurrence: US)
  Receive Date: 20120828
  Receipt Date: 20131105
  Transmission Date: 20140711
  Serious: Yes (Other)
  Sender: FDA-Public Use
  Company Number: US-MERCK-1208USA010094

PATIENT
  Age: 54 Year
  Sex: Male

DRUGS (1)
  1. PEGINTRON [Suspect]
     Dosage: 120 MICROGRAM, QW
     Route: 058
     Dates: start: 20120402, end: 20120813

REACTIONS (4)
  - Musculoskeletal stiffness [Unknown]
  - Trismus [Unknown]
  - Pyrexia [Unknown]
  - Chills [Unknown]
